FAERS Safety Report 8159814-7 (Version None)
Quarter: 2012Q1

REPORT INFORMATION
  Report Type: 
  Country: None (occurrence: None)
  Receive Date: 20120223
  Receipt Date: 20120215
  Transmission Date: 20120608
  Serious: Yes (Other)
  Sender: FDA-Public Use
  Company Number: CA-BAYER-2012-015292

PATIENT
  Age: 63 Year
  Sex: Female

DRUGS (9)
  1. NASONEX [Suspect]
  2. AVELOX [Suspect]
     Dosage: 400 MG, QD
  3. ALPRAZOLAM [Concomitant]
  4. RAMIPRIL [Concomitant]
  5. SERTRALINE HYDROCHLORIDE [Concomitant]
  6. ASPIRIN [Concomitant]
  7. CRESTOR [Concomitant]
  8. DILANTIN [Concomitant]
  9. TRAZODONE HCL [Concomitant]

REACTIONS (2)
  - HAEMOPTYSIS [None]
  - PRODUCTIVE COUGH [None]
